FAERS Safety Report 12340761 (Version 1)
Quarter: 2016Q2

REPORT INFORMATION
  Report Type: Spontaneous
  Country: ES (occurrence: ES)
  Receive Date: 20160506
  Receipt Date: 20160506
  Transmission Date: 20160815
  Serious: Yes (Other)
  Sender: FDA-Public Use
  Company Number: ES-WATSON-2016-09395

PATIENT
  Age: 87 Year
  Sex: Male

DRUGS (3)
  1. LEVOFLOXACIN (UNKNOWN) [Suspect]
     Active Substance: LEVOFLOXACIN
     Indication: RESPIRATORY TRACT INFECTION
     Dosage: 500 MG, BID
     Route: 065
  2. LEVOFLOXACIN (UNKNOWN) [Interacting]
     Active Substance: LEVOFLOXACIN
     Dosage: 500 MG, DAILY
     Route: 048
  3. ACENOCOUMAROL [Interacting]
     Active Substance: ACENOCOUMAROL
     Indication: THROMBOSIS PROPHYLAXIS
     Dosage: UNK
     Route: 065

REACTIONS (2)
  - International normalised ratio increased [Recovered/Resolved]
  - Drug interaction [Recovered/Resolved]
